FAERS Safety Report 6834786-3 (Version None)
Quarter: 2010Q3

REPORT INFORMATION
  Report Type: 
  Country: None (occurrence: None)
  Receive Date: 20100712
  Receipt Date: 20070412
  Transmission Date: 20110219
  Serious: No
  Sender: FDA-Public Use
  Company Number: US-PFIZER INC-2007030263

PATIENT
  Sex: Female
  Weight: 71.8 kg

DRUGS (3)
  1. CHANTIX [Suspect]
     Indication: SMOKING CESSATION THERAPY
     Dates: start: 20070214
  2. LIPITOR [Concomitant]
  3. VALSARTAN [Concomitant]

REACTIONS (3)
  - DRUG DEPENDENCE [None]
  - FATIGUE [None]
  - INTENTIONAL DRUG MISUSE [None]
